FAERS Safety Report 7302076-0 (Version None)
Quarter: 2011Q1

REPORT INFORMATION
  Report Type: 
  Country: None (occurrence: None)
  Receive Date: 20110218
  Receipt Date: 20110215
  Transmission Date: 20110831
  Serious: Yes (Hospitalization)
  Sender: FDA-Public Use
  Company Number: JP-PFIZER INC-2011032842

PATIENT
  Age: 55 Year
  Sex: Female

DRUGS (3)
  1. ARTANE [Suspect]
     Dosage: 2 MG, UNK
     Route: 048
  2. ROHYPNOL [Concomitant]
  3. WYPAX [Suspect]
     Dosage: 0.5 MG, UNK
     Route: 048

REACTIONS (2)
  - OVERDOSE [None]
  - LOSS OF CONSCIOUSNESS [None]
